FAERS Safety Report 9167920 (Version 1)
Quarter: 2013Q1

REPORT INFORMATION
  Report Type: Spontaneous
  Country: US (occurrence: US)
  Receive Date: 20130318
  Receipt Date: 20130318
  Transmission Date: 20140127
  Serious: No
  Sender: FDA-Public Use
  Company Number: US-BAYER-2013-028874

PATIENT
  Sex: Female

DRUGS (1)
  1. ADALAT CC [Suspect]

REACTIONS (3)
  - Malaise [None]
  - Feeling abnormal [None]
  - Drug administration error [None]
